FAERS Safety Report 6663957-4 (Version None)
Quarter: 2010Q2

REPORT INFORMATION
  Report Type: 
  Country: None (occurrence: None)
  Receive Date: 20100401
  Receipt Date: 20100324
  Transmission Date: 20101027
  Serious: Yes (Hospitalization)
  Sender: FDA-Public Use
  Company Number: KR-BAXTER-2010BH006430

PATIENT
  Age: 8 Year
  Sex: Male
  Weight: 44 kg

DRUGS (12)
  1. ADVATE [Suspect]
     Indication: HAEMOPHILIC ARTHROPATHY
     Route: 042
     Dates: start: 20100203, end: 20100203
  2. ADVATE [Suspect]
     Route: 042
     Dates: start: 20100204, end: 20100204
  3. ADVATE [Suspect]
     Route: 042
     Dates: start: 20100205, end: 20100205
  4. ADVATE [Suspect]
     Route: 042
     Dates: start: 20100208, end: 20100208
  5. ADVATE [Suspect]
     Route: 042
     Dates: start: 20100211, end: 20100211
  6. ADVATE [Suspect]
     Route: 042
     Dates: start: 20100212, end: 20100212
  7. ADVATE [Suspect]
     Route: 042
     Dates: start: 20100213, end: 20100213
  8. ADVATE [Suspect]
     Route: 042
     Dates: start: 20100216, end: 20100216
  9. ADVATE [Suspect]
     Route: 042
     Dates: start: 20100302, end: 20100302
  10. RECOMBINATE [Concomitant]
     Dates: end: 20100303
  11. HUMAN FACTOR VIII [Concomitant]
     Dates: end: 20100126
  12. HUMAN FACTOR VIII [Concomitant]

REACTIONS (4)
  - ARTHRALGIA [None]
  - DRUG INEFFECTIVE [None]
  - JOINT RANGE OF MOTION DECREASED [None]
  - JOINT SWELLING [None]
